FAERS Safety Report 13307148 (Version 1)
Quarter: 2017Q1

REPORT INFORMATION
  Report Type: Spontaneous
  Country: US (occurrence: US)
  Receive Date: 20170308
  Receipt Date: 20170308
  Transmission Date: 20170428
  Serious: No
  Sender: FDA-Public Use
  Company Number: US-ASTRAZENECA-2017SE24275

PATIENT
  Sex: Female
  Weight: 72.6 kg

DRUGS (5)
  1. MOVANTIK [Suspect]
     Active Substance: NALOXEGOL OXALATE
     Indication: CONSTIPATION
     Route: 048
     Dates: start: 20170225
  2. OPANA [Concomitant]
     Active Substance: OXYMORPHONE HYDROCHLORIDE
     Indication: BACK PAIN
     Route: 048
  3. LANTUS [Concomitant]
     Active Substance: INSULIN GLARGINE
     Indication: DIABETES MELLITUS
     Dosage: AT NIGHT
     Route: 058
  4. METOPROLOL TARTRATE. [Suspect]
     Active Substance: METOPROLOL TARTRATE
     Route: 048
     Dates: start: 1992
  5. LASIX [Concomitant]
     Active Substance: FUROSEMIDE
     Dosage: AS REQUIRED
     Route: 048

REACTIONS (10)
  - Fatigue [Not Recovered/Not Resolved]
  - Anxiety [Not Recovered/Not Resolved]
  - Flatulence [Not Recovered/Not Resolved]
  - Body height decreased [Unknown]
  - Anal incontinence [Not Recovered/Not Resolved]
  - Middle insomnia [Not Recovered/Not Resolved]
  - Blood cholesterol increased [Unknown]
  - Hypoacusis [Unknown]
  - Faeces soft [Not Recovered/Not Resolved]
  - Drug ineffective [Not Recovered/Not Resolved]
